FAERS Safety Report 6792922-1 (Version None)
Quarter: 2010Q2

REPORT INFORMATION
  Report Type: 
  Country: None (occurrence: None)
  Receive Date: 20100624
  Receipt Date: 20081027
  Transmission Date: 20101027
  Serious: No
  Sender: FDA-Public Use
  Company Number: US-PFIZER INC-2008090709

PATIENT
  Sex: Female
  Weight: 77.11 kg

DRUGS (3)
  1. CADUET [Suspect]
     Indication: HYPERTENSION
     Dosage: 10 MG/20 MG
     Dates: start: 20081001, end: 20081025
  2. CADUET [Suspect]
     Indication: BLOOD CHOLESTEROL INCREASED
  3. SYNTHROID [Concomitant]
     Indication: THYROID DISORDER

REACTIONS (1)
  - CHEST DISCOMFORT [None]
